FAERS Safety Report 9813202 (Version 1)
Quarter: 2014Q1

REPORT INFORMATION
  Report Type: Report from Study
  Country: CA (occurrence: CA)
  Receive Date: 20140113
  Receipt Date: 20140113
  Transmission Date: 20141002
  Serious: Yes (Hospitalization)
  Sender: FDA-Public Use
  Company Number: CA-JNJFOC-20140103704

PATIENT
  Age: 18 Year
  Sex: Male
  Weight: 84.3 kg

DRUGS (1)
  1. REMICADE [Suspect]
     Indication: CROHN^S DISEASE
     Route: 042
     Dates: start: 20130129

REACTIONS (5)
  - Pharyngitis [Unknown]
  - Abdominal pain [Unknown]
  - Mucous stools [Unknown]
  - Haematochezia [Unknown]
  - Diarrhoea [Unknown]
